FAERS Safety Report 5913213-4 (Version None)
Quarter: 2008Q4

REPORT INFORMATION
  Report Type: 
  Country: None (occurrence: None)
  Receive Date: 20081009
  Receipt Date: 20081002
  Transmission Date: 20090506
  Serious: Yes (Other)
  Sender: FDA-Public Use
  Company Number: CH-WYE-G01901908

PATIENT
  Age: 44 Year
  Sex: Female

DRUGS (5)
  1. EFFEXOR [Suspect]
     Indication: DEPRESSION
     Dates: start: 20030101
  2. EFFEXOR [Suspect]
  3. TRITTICO [Concomitant]
     Indication: DEPRESSION
     Dates: start: 20071101
  4. ELTROXIN [Concomitant]
  5. LITHIOFOR [Concomitant]
     Indication: DEPRESSION

REACTIONS (3)
  - ANTIDEPRESSANT DRUG LEVEL INCREASED [None]
  - OVERDOSE [None]
  - SUICIDAL BEHAVIOUR [None]
